FAERS Safety Report 10358221 (Version 1)
Quarter: 2014Q3

REPORT INFORMATION
  Report Type: Spontaneous
  Country: BR (occurrence: BR)
  Receive Date: 20140801
  Receipt Date: 20140801
  Transmission Date: 20150326
  Serious: Yes (Hospitalization, Other)
  Sender: FDA-Public Use
  Company Number: BR-PFIZER INC-2014211088

PATIENT
  Age: 76 Year
  Sex: Female
  Weight: 70 kg

DRUGS (7)
  1. VYTORIN [Concomitant]
     Active Substance: EZETIMIBE\SIMVASTATIN
     Indication: BLOOD CHOLESTEROL ABNORMAL
     Dosage: 1 TABLET OR CAPSULE (FORMULATION NOT SPECIFIED BY REPORTER) DAILY
  2. CALCITRAN D3 [Concomitant]
     Indication: OSTEOPOROSIS
     Dosage: 1 TABLET OR CAPSULE (FORMULATION NOT SPECIFIED BY REPORTER) AFTER LUNCH
  3. SERTRALINE HYDROCHLORIDE. [Concomitant]
     Active Substance: SERTRALINE HYDROCHLORIDE
     Indication: DEPRESSION
     Dosage: 1 TABLETS OR CAPSULES (FORMULATION NOT SPECIFIED BY REPORTER) IN THE MORNING
  4. BROMAZEPAM [Concomitant]
     Active Substance: BROMAZEPAM
     Indication: SLEEP DISORDER
     Dosage: 1 TABLET OR CAPSULE (FORMULATION NOT SPECIFIED BY REPORTER) AT NIGHT
  5. EUTHYROX [Concomitant]
     Active Substance: LEVOTHYROXINE SODIUM
     Indication: THYROID DISORDER
     Dosage: 1 TABLET OR CAPSULE (FORMULATION NOT SPECIFIED BY REPORTER) IN FASTING
  6. XALATAN [Suspect]
     Active Substance: LATANOPROST
     Indication: GLAUCOMA
     Dosage: 3 UG, 1 DROP IN EACH EYE, 1X/DAY
     Route: 047
  7. NATRILIX SR [Concomitant]
     Active Substance: INDAPAMIDE
     Indication: BLOOD PRESSURE ABNORMAL
     Dosage: 1TABLET OR CAPSULE (FORMULATION NOT SPECIFIED BY REPORTER) IN THE MORNING
     Dates: start: 1974

REACTIONS (11)
  - Intraocular pressure increased [Unknown]
  - Eye disorder [Unknown]
  - Skull fracture [Unknown]
  - Eye colour change [Not Recovered/Not Resolved]
  - Labyrinthitis [Unknown]
  - Head injury [Unknown]
  - Glaucoma [Unknown]
  - Brain neoplasm [Unknown]
  - Amnesia [Unknown]
  - Cerebral thrombosis [Unknown]
  - Dry eye [Unknown]

NARRATIVE: CASE EVENT DATE: 2010
